FAERS Safety Report 5387133-0 (Version None)
Quarter: 2007Q3

REPORT INFORMATION
  Report Type: 
  Country: None (occurrence: None)
  Receive Date: 20070711
  Receipt Date: 20070625
  Transmission Date: 20080115
  Serious: Yes (Other)
  Sender: FDA-Public Use
  Company Number: 2007-011

PATIENT

DRUGS (2)
  1. OMEPRAZOLE [Suspect]
     Indication: GASTROOESOPHAGEAL REFLUX DISEASE
  2. ESOMEPRAZOLE MAGNESIUM [Suspect]

REACTIONS (3)
  - FACE OEDEMA [None]
  - RESPIRATORY DISTRESS [None]
  - WHEEZING [None]
